FAERS Safety Report 17717615 (Version 1)
Quarter: 2020Q2

REPORT INFORMATION
  Report Type: Spontaneous
  Country: US (occurrence: US)
  Receive Date: 20200428
  Receipt Date: 20200428
  Transmission Date: 20200714
  Serious: No
  Sender: FDA-Public Use
  Company Number: US-ASTRAZENECA-2020SE48580

PATIENT

DRUGS (1)
  1. PULMICORT FLEXHALER [Suspect]
     Active Substance: BUDESONIDE
     Dosage: UNKNOWN DOSE TWO TIMES A DAY
     Route: 055

REACTIONS (2)
  - Device failure [Unknown]
  - Cough [Unknown]

NARRATIVE: CASE EVENT DATE: 201911
